FAERS Safety Report 26215623 (Version 1)
Quarter: 2025Q4

REPORT INFORMATION
  Report Type: Spontaneous
  Country: TN (occurrence: TN)
  Receive Date: 20251231
  Receipt Date: 20251231
  Transmission Date: 20260118
  Serious: Yes (Hospitalization, Other)
  Sender: RANBAXY
  Company Number: TN-SUN PHARMACEUTICAL INDUSTRIES LTD-2025R1-544057

PATIENT
  Age: 64 Year
  Sex: Female

DRUGS (1)
  1. FENOFIBRATE [Suspect]
     Active Substance: FENOFIBRATE
     Indication: Hyperlipidaemia
     Dosage: 100 MILLIGRAM, OD
     Route: 065

REACTIONS (3)
  - Rhabdomyolysis [Recovering/Resolving]
  - Myocardial injury [Recovering/Resolving]
  - Renal injury [Recovering/Resolving]
